FAERS Safety Report 21155836 (Version 4)
Quarter: 2022Q4

REPORT INFORMATION
  Report Type: Report from Study
  Country: US (occurrence: US)
  Receive Date: 20220801
  Receipt Date: 20221027
  Transmission Date: 20230113
  Serious: Yes (Other)
  Sender: FDA-Public Use
  Company Number: US-ABBVIE-22K-163-4484677-00

PATIENT
  Sex: Male

DRUGS (1)
  1. IMBRUVICA [Suspect]
     Active Substance: IBRUTINIB
     Indication: Product used for unknown indication
     Route: 048
     Dates: start: 20220819, end: 2022

REACTIONS (4)
  - Suture insertion [Unknown]
  - Urinary tract infection [Unknown]
  - Post procedural sepsis [Unknown]
  - Fall [Unknown]

NARRATIVE: CASE EVENT DATE: 20220101
